FAERS Safety Report 16882004 (Version 1)
Quarter: 2019Q4

REPORT INFORMATION
  Report Type: Spontaneous
  Country: CA (occurrence: CA)
  Receive Date: 20191003
  Receipt Date: 20191003
  Transmission Date: 20200122
  Serious: Yes (Other)
  Sender: FDA-Public Use
  Company Number: CA-PURDUE PHARMA-CAN-2019-0010317

PATIENT
  Age: 21 Year
  Sex: Female

DRUGS (4)
  1. HYDROMORPHONE HYDROCHLORIDE. [Suspect]
     Active Substance: HYDROMORPHONE HYDROCHLORIDE
     Indication: PRODUCT USED FOR UNKNOWN INDICATION
     Dosage: UNK
     Route: 065
     Dates: start: 201902
  2. DILAUDID [Suspect]
     Active Substance: HYDROMORPHONE HYDROCHLORIDE
     Indication: PRODUCT USED FOR UNKNOWN INDICATION
     Dosage: UNK
     Route: 065
  3. METHAMPHETAMINE [Suspect]
     Active Substance: METHAMPHETAMINE
     Indication: PRODUCT USED FOR UNKNOWN INDICATION
     Dosage: UNK
     Route: 065
     Dates: start: 201902
  4. COCAINE [Suspect]
     Active Substance: COCAINE
     Indication: PRODUCT USED FOR UNKNOWN INDICATION
     Dosage: UNK
     Route: 065
     Dates: start: 201902

REACTIONS (21)
  - Substance abuse [Recovering/Resolving]
  - Hepatic failure [Recovering/Resolving]
  - Loss of consciousness [Recovering/Resolving]
  - Hospitalisation [Recovering/Resolving]
  - Euphoric mood [Unknown]
  - Analgesic therapy [Unknown]
  - Fine motor skill dysfunction [Recovering/Resolving]
  - Renal failure [Recovering/Resolving]
  - Cerebrovascular accident [Recovering/Resolving]
  - Near death experience [Recovering/Resolving]
  - Endotracheal intubation [Recovering/Resolving]
  - Overdose [Recovering/Resolving]
  - Emotional poverty [Unknown]
  - Myocardial infarction [Recovering/Resolving]
  - Nasal congestion [Unknown]
  - Coma [Recovering/Resolving]
  - Amnesia [Recovering/Resolving]
  - Drug tolerance increased [Unknown]
  - Substance dependence [Recovering/Resolving]
  - Pulmonary oedema [Recovering/Resolving]
  - Balance disorder [Recovering/Resolving]
